FAERS Safety Report 10915176 (Version 1)
Quarter: 2015Q1

REPORT INFORMATION
  Report Type: Spontaneous
  Country: CA (occurrence: CA)
  Receive Date: 20150316
  Receipt Date: 20150316
  Transmission Date: 20150721
  Serious: Yes (Hospitalization)
  Sender: FDA-Public Use
  Company Number: CA-MERCK-1502CAN010944

PATIENT
  Age: 4 Day
  Sex: Male
  Weight: 3.59 kg

DRUGS (6)
  1. ISENTRESS [Suspect]
     Active Substance: RALTEGRAVIR POTASSIUM
     Indication: PROPHYLAXIS AGAINST HIV INFECTION
     Dosage: 1.5 MG/KG MORNING DOSE/2.7 ML 10 X THE RECOMMENDED DOSE(0.27 ML)
     Route: 048
     Dates: start: 20150221, end: 20150221
  2. LOPINAVIR (+) RITONAVIR [Concomitant]
     Active Substance: LOPINAVIR\RITONAVIR
     Indication: PROPHYLAXIS AGAINST HIV INFECTION
     Dosage: 30 MG, BID
     Route: 048
     Dates: start: 20150217
  3. ISENTRESS [Suspect]
     Active Substance: RALTEGRAVIR POTASSIUM
     Dosage: UNK
     Route: 048
     Dates: start: 20150223
  4. ISENTRESS [Suspect]
     Active Substance: RALTEGRAVIR POTASSIUM
     Dosage: STRENGTH AS 10MG/ML AND 100MG/SACHET; DAILY DOSE 5.4 MG
     Route: 048
     Dates: start: 20150217, end: 20150220
  5. ZIDOVUDINE. [Concomitant]
     Active Substance: ZIDOVUDINE
     Indication: PROPHYLAXIS AGAINST HIV INFECTION
     Dosage: 7 MG, BID
     Route: 048
     Dates: start: 20150217
  6. LAMIVUDINE. [Concomitant]
     Active Substance: LAMIVUDINE
     Indication: PROPHYLAXIS AGAINST HIV INFECTION
     Dosage: 3.5 MG, BID
     Route: 048
     Dates: start: 20150217

REACTIONS (2)
  - No adverse event [Unknown]
  - Accidental overdose [Unknown]

NARRATIVE: CASE EVENT DATE: 20150221
